FAERS Safety Report 6425369-8 (Version None)
Quarter: 2009Q4

REPORT INFORMATION
  Report Type: 
  Country: None (occurrence: None)
  Receive Date: 20091103
  Receipt Date: 20091023
  Transmission Date: 20100525
  Serious: Yes (Life-Threatening)
  Sender: FDA-Public Use
  Company Number: B0596465A

PATIENT
  Sex: Male
  Weight: 3.6 kg

DRUGS (15)
  1. PAXIL [Suspect]
     Indication: DISSOCIATIVE DISORDER
     Dosage: 40MG PER DAY
  2. DEPAS [Suspect]
     Indication: DISSOCIATIVE DISORDER
     Dosage: 1MG PER DAY
  3. LEVOTOMIN [Concomitant]
     Indication: DISSOCIATIVE DISORDER
     Dosage: 25MG PER DAY
  4. ROHYPNOL [Concomitant]
     Indication: DISSOCIATIVE DISORDER
     Dosage: 2MG PER DAY
  5. MYSLEE [Concomitant]
     Indication: DISSOCIATIVE DISORDER
     Dosage: 10MG PER DAY
  6. RISPERDAL [Concomitant]
     Indication: DISSOCIATIVE DISORDER
     Dosage: 1MG PER DAY
  7. MEDEPOLIN [Concomitant]
     Indication: DISSOCIATIVE DISORDER
  8. FERROMIA [Concomitant]
     Indication: DISSOCIATIVE DISORDER
  9. XYLOCAINE [Concomitant]
     Dosage: 1ML PER DAY
     Dates: start: 20091002, end: 20091002
  10. FENTANYL-100 [Concomitant]
     Dates: start: 20091002, end: 20091002
  11. CARBOCAIN [Concomitant]
     Dosage: 8ML PER DAY
     Dates: start: 20091002, end: 20091002
  12. MARCAINE [Concomitant]
     Dates: start: 20091002, end: 20091002
  13. UNKNOWN DRUG [Concomitant]
     Dosage: .15ML PER DAY
     Dates: start: 20091002, end: 20091002
  14. UNSPECIFIED DRUG [Concomitant]
     Dates: start: 20091002, end: 20091002
  15. CEFDINIR [Concomitant]

REACTIONS (5)
  - CONVULSION [None]
  - DRUG EXPOSURE DURING PREGNANCY [None]
  - DRUG WITHDRAWAL SYNDROME NEONATAL [None]
  - GLOSSOPTOSIS [None]
  - RESPIRATORY DISORDER [None]
